FAERS Safety Report 4441459-3 (Version None)
Quarter: 2004Q3

REPORT INFORMATION
  Report Type: 
  Country: None (occurrence: None)
  Receive Date: 20040728
  Receipt Date: 20040405
  Transmission Date: 20050211
  Serious: No
  Sender: FDA-Public Use
  Company Number: USA040464119

PATIENT
  Age: 6 Year
  Sex: Female

DRUGS (1)
  1. STRATTERA [Suspect]
     Indication: ATTENTION DEFICIT/HYPERACTIVITY DISORDER
     Dosage: 18 MG IN THE MORNING
     Dates: start: 20040402

REACTIONS (3)
  - FATIGUE [None]
  - FEELING ABNORMAL [None]
  - SOMNOLENCE [None]
